FAERS Safety Report 10646613 (Version 1)
Quarter: 2014Q4

REPORT INFORMATION
  Report Type: Spontaneous
  Country: US (occurrence: US)
  Receive Date: 20141211
  Receipt Date: 20141211
  Transmission Date: 20150529
  Serious: Yes (Hospitalization)
  Sender: FDA-Public Use
  Company Number: US-PFIZER INC-2014335104

PATIENT
  Age: 67 Year
  Sex: Male

DRUGS (1)
  1. INLYTA [Suspect]
     Active Substance: AXITINIB
     Indication: PLASMA CELL MYELOMA
     Dosage: 5 MG, UNK
     Dates: start: 20141111, end: 2014

REACTIONS (2)
  - Product use issue [Unknown]
  - Renal failure [Unknown]

NARRATIVE: CASE EVENT DATE: 201411
